FAERS Safety Report 10181291 (Version 1)
Quarter: 2014Q2

REPORT INFORMATION
  Report Type: Report from Study
  Country: US (occurrence: US)
  Receive Date: 20140519
  Receipt Date: 20140519
  Transmission Date: 20141212
  Serious: Yes (Hospitalization, Other)
  Sender: FDA-Public Use
  Company Number: US-SA-2014SA059952

PATIENT
  Sex: Male

DRUGS (1)
  1. LANTUS [Suspect]
     Indication: PRODUCT USED FOR UNKNOWN INDICATION
     Dosage: REPORTED THAT PATIENT HAD BEEN USING LANTUS FOR 2 YEARS
     Route: 058

REACTIONS (4)
  - Cerebrovascular accident [Unknown]
  - Neoplasm malignant [Unknown]
  - Hospitalisation [Unknown]
  - Neuropathy peripheral [Unknown]
